FAERS Safety Report 8350513-5 (Version None)
Quarter: 2012Q2

REPORT INFORMATION
  Report Type: 
  Country: None (occurrence: None)
  Receive Date: 20120510
  Receipt Date: 20120503
  Transmission Date: 20120825
  Serious: Yes (Hospitalization)
  Sender: FDA-Public Use
  Company Number: US-BAYER-201020670NA

PATIENT
  Age: 25 Year
  Sex: Female
  Weight: 63.492 kg

DRUGS (18)
  1. TRIAZOLAM [Concomitant]
     Indication: INSOMNIA
     Dosage: UNK
     Dates: start: 20070101, end: 20070401
  2. DEMEROL [Concomitant]
     Dosage: UNK
     Dates: start: 20080701
  3. LYRICA [Concomitant]
     Dosage: UNK
     Dates: start: 20080701
  4. ANTIBIOTICS [Concomitant]
     Indication: INFECTION
     Dosage: UNK
     Dates: start: 20070101
  5. ZYRTEC [Concomitant]
     Indication: SEASONAL ALLERGY
     Dosage: UNK
     Dates: start: 20070701, end: 20070901
  6. XANAX [Concomitant]
     Dosage: UNK
     Dates: start: 20080701
  7. CYCLOBENZAPRINE [Concomitant]
     Dosage: UNK
     Dates: start: 20080701
  8. YAZ [Suspect]
     Indication: PREMENSTRUAL SYNDROME
  9. CEPHALEXIN [Concomitant]
     Indication: ANTIBIOTIC THERAPY
     Dosage: 500 MG, UNK
     Dates: start: 20080601, end: 20080701
  10. SERTRALINE HYDROCHLORIDE [Concomitant]
     Indication: DEPRESSION
     Dosage: UNK
     Dates: start: 20070101, end: 20080501
  11. FLEXERIL [Concomitant]
     Dosage: UNK
     Dates: start: 20080701
  12. YAZ [Suspect]
     Indication: ACNE
  13. TRAZODONE HCL [Concomitant]
     Indication: DEPRESSION
     Dosage: 100 MG, UNK
     Dates: start: 20080601, end: 20080701
  14. ZOLOFT [Concomitant]
     Dosage: UNK
     Dates: start: 20080701
  15. NORCO [Concomitant]
     Dosage: UNK
  16. YAZ [Suspect]
     Indication: ORAL CONTRACEPTION
     Dosage: UNK UNK, UNK
     Route: 048
     Dates: start: 20071120, end: 20080701
  17. PHENERGAN [Concomitant]
     Dosage: UNK
     Dates: start: 20080701
  18. PERCOCET [Concomitant]
     Dosage: UNK
     Dates: start: 20080701

REACTIONS (9)
  - PAIN IN EXTREMITY [None]
  - OEDEMA PERIPHERAL [None]
  - TENDERNESS [None]
  - HYPOAESTHESIA [None]
  - PULMONARY EMBOLISM [None]
  - CHEST PAIN [None]
  - FALL [None]
  - SUBCLAVIAN VEIN THROMBOSIS [None]
  - DYSPNOEA EXERTIONAL [None]
